FAERS Safety Report 6477927-2 (Version None)
Quarter: 2009Q4

REPORT INFORMATION
  Report Type: 
  Country: None (occurrence: None)
  Receive Date: 20091207
  Receipt Date: 20091204
  Transmission Date: 20100525
  Serious: Yes (Hospitalization)
  Sender: FDA-Public Use
  Company Number: A0810000B

PATIENT
  Sex: Female
  Weight: 61.7 kg

DRUGS (4)
  1. ELTROMBOPAG [Suspect]
     Indication: THROMBOCYTOPENIA
     Route: 048
     Dates: start: 20090416, end: 20091013
  2. PEGASYS [Suspect]
     Route: 058
     Dates: start: 20090416, end: 20091008
  3. COPEGUS [Suspect]
     Route: 048
     Dates: start: 20090416, end: 20091013
  4. ELTROMBOPAG [Suspect]
     Dosage: 25MG PER DAY
     Route: 048
     Dates: start: 20090402, end: 20090415

REACTIONS (3)
  - ABDOMINAL DISTENSION [None]
  - CONFUSIONAL STATE [None]
  - PERITONITIS BACTERIAL [None]
